FAERS Safety Report 4737242-1 (Version None)
Quarter: 2005Q3

REPORT INFORMATION
  Report Type: 
  Country: None (occurrence: None)
  Receive Date: 20050728
  Receipt Date: 20050516
  Transmission Date: 20060218
  Serious: No
  Sender: FDA-Public Use
  Company Number: 200514253US

PATIENT
  Sex: Male

DRUGS (8)
  1. KETEK [Suspect]
     Indication: RESPIRATORY TRACT INFECTION
     Dosage: PO
     Route: 048
     Dates: start: 20041214, end: 20041214
  2. HYDROXYZINE HYDROCHLORIDE [Concomitant]
  3. HYDROCODONE [Concomitant]
  4. CHLORPHENAMINE (TUSSIONEX PENNKINETIC) [Concomitant]
  5. CODEINE PHOSPHATE [Concomitant]
  6. PARACETAMOL (TYLENOL W/CODEINE NO. 3) [Concomitant]
  7. MONTELUKAST SODIUM [Concomitant]
  8. INHALERS NOS [Concomitant]

REACTIONS (1)
  - RASH [None]
